FAERS Safety Report 4818611-8 (Version None)
Quarter: 2005Q4

REPORT INFORMATION
  Report Type: 
  Country: None (occurrence: None)
  Receive Date: 20051031
  Receipt Date: 20051021
  Transmission Date: 20060501
  Serious: Yes (Life-Threatening, Disabling)
  Sender: FDA-Public Use
  Company Number: CA028-05-0431

PATIENT
  Age: 57 Year
  Sex: Male

DRUGS (8)
  1. ABRAXANE                  (PACLITAXEL) [Suspect]
     Indication: NON-SMALL CELL LUNG CANCER
     Dosage: SEE IMAGE
     Route: 041
     Dates: start: 20050518
  2. CARBOPLATIN [Suspect]
     Indication: NON-SMALL CELL LUNG CANCER
     Dosage: SEE IMAGE
     Route: 041
     Dates: start: 20050518
  3. NEUROMULTIVIT                         (NEUROBION FOR INJECTION) [Concomitant]
  4. TRENTAL [Concomitant]
  5. THIOCTIC ACID                (THIOCTIC ACID) [Concomitant]
  6. DROTAVERIN HYDROCHLORIDE                  (DROTAVERINE HYDROCHLORIDE) [Concomitant]
  7. DIPYRONE TAB [Concomitant]
  8. NIMESULIDE (NIMESULIDE) [Concomitant]

REACTIONS (5)
  - ABASIA [None]
  - MYELOPATHY [None]
  - NEUROPATHY PERIPHERAL [None]
  - POLYNEUROPATHY TOXIC [None]
  - URINARY INCONTINENCE [None]
